FAERS Safety Report 8251422-2 (Version None)
Quarter: 2012Q1

REPORT INFORMATION
  Report Type: 
  Country: None (occurrence: None)
  Receive Date: 20120321
  Receipt Date: 20110519
  Transmission Date: 20120608
  Serious: No
  Sender: FDA-Public Use
  Company Number: PHHY2011US44210

PATIENT
  Age: 54 Year
  Sex: Male

DRUGS (1)
  1. ILARIS [Suspect]
     Dosage: 150 MG, EVERY 8 WEEKS, SUBCUTANEOUS
     Route: 058
     Dates: start: 20110106, end: 20110517

REACTIONS (2)
  - PYREXIA [None]
  - DRUG INEFFECTIVE [None]
